FAERS Safety Report 12524414 (Version 2)
Quarter: 2016Q3

REPORT INFORMATION
  Report Type: Spontaneous
  Country: US (occurrence: US)
  Receive Date: 20160704
  Receipt Date: 20160920
  Transmission Date: 20161109
  Serious: Yes (Hospitalization, Other)
  Sender: FDA-Public Use
  Company Number: US-AMGEN-USASP2016085248

PATIENT
  Sex: Female

DRUGS (3)
  1. POMALYST [Concomitant]
     Active Substance: POMALIDOMIDE
     Indication: PLASMA CELL MYELOMA
     Dosage: UNK
  2. DEXAMETHASONE. [Concomitant]
     Active Substance: DEXAMETHASONE
     Indication: PLASMA CELL MYELOMA
     Dosage: UNK
  3. KYPROLIS [Suspect]
     Active Substance: CARFILZOMIB
     Indication: PLASMA CELL MYELOMA
     Dosage: UNK
     Route: 065
     Dates: start: 20160516, end: 20160618

REACTIONS (12)
  - Abdominal pain upper [Unknown]
  - Back pain [Unknown]
  - Faecaloma [Unknown]
  - Heart rate increased [Unknown]
  - Lagophthalmos [Unknown]
  - Confusional state [Unknown]
  - Ileus [Unknown]
  - Bone neoplasm [Unknown]
  - Musculoskeletal chest pain [Unknown]
  - Dizziness [Unknown]
  - Abdominal distension [Unknown]
  - Decreased appetite [Unknown]

NARRATIVE: CASE EVENT DATE: 2016
